FAERS Safety Report 7060083-X (Version None)
Quarter: 2010Q4

REPORT INFORMATION
  Report Type: 
  Country: None (occurrence: None)
  Receive Date: 20101025
  Receipt Date: 20101019
  Transmission Date: 20110411
  Serious: Yes (Hospitalization, Disabling)
  Sender: FDA-Public Use
  Company Number: US-GILEAD-2010-0031723

PATIENT
  Sex: Female
  Weight: 108.96 kg

DRUGS (19)
  1. LETAIRIS [Suspect]
     Indication: PULMONARY ARTERIAL HYPERTENSION
     Route: 048
     Dates: start: 20100824
  2. ADCIRCA [Concomitant]
  3. ANUSOL HC [Concomitant]
  4. DARVOCET [Concomitant]
  5. ZAROXOLYN [Concomitant]
  6. LASIX [Concomitant]
  7. ALBUTEROL [Concomitant]
  8. LIPITOR [Concomitant]
  9. POTASSIUM CHLORIDE [Concomitant]
  10. NASONEX [Concomitant]
  11. METRONIDAZOLE [Concomitant]
  12. PULMICORT [Concomitant]
  13. NEXIUM [Concomitant]
  14. MULTI-VITAMIN [Concomitant]
  15. LEVOXYL [Concomitant]
  16. ASPIRIN [Concomitant]
  17. ASCORBIC ACID [Concomitant]
  18. GLUCOSAMINE [Concomitant]
  19. OXYGEN [Concomitant]

REACTIONS (2)
  - FLUID RETENTION [None]
  - RECTAL HAEMORRHAGE [None]
